FAERS Safety Report 7530602 (Version 3)
Quarter: 2015Q1

REPORT INFORMATION
  Report Type: Report from Study
  Country: US (occurrence: US)
  Receive Date: 20100806
  Receipt Date: 20150327
  Transmission Date: 20150721
  Serious: Yes (Death)
  Sender: FDA-Public Use
  Company Number: US-ROCHE-684273

PATIENT
  Age: 62 Year
  Sex: Female
  Weight: 98.9 kg

DRUGS (4)
  1. XELODA [Suspect]
     Active Substance: CAPECITABINE
     Dosage: DOSAGE REDUCED
     Route: 048
     Dates: start: 20100113, end: 20100127
  2. XELODA [Suspect]
     Active Substance: CAPECITABINE
     Route: 048
  3. XELODA [Suspect]
     Active Substance: CAPECITABINE
     Indication: BREAST CANCER
     Dosage: TAKEN FOR 2 WEEKS
     Route: 048
     Dates: start: 20091218, end: 20100101
  4. XELODA [Suspect]
     Active Substance: CAPECITABINE
     Dosage: LOWERED DOSE
     Route: 048
     Dates: start: 20100203, end: 20100217

REACTIONS (2)
  - Malignant neoplasm progression [Fatal]
  - Palmar-plantar erythrodysaesthesia syndrome [Unknown]

NARRATIVE: CASE EVENT DATE: 20100127
